FAERS Safety Report 17724087 (Version 2)
Quarter: 2020Q2

REPORT INFORMATION
  Report Type: Report from Study
  Country: AU (occurrence: AU)
  Receive Date: 20200429
  Receipt Date: 20200612
  Transmission Date: 20200714
  Serious: Yes (Hospitalization, Other)
  Sender: FDA-Public Use
  Company Number: AU-BIOGEN-2020BI00867107

PATIENT
  Age: 66 Year
  Sex: Male

DRUGS (1)
  1. TECFIDERA [Suspect]
     Active Substance: DIMETHYL FUMARATE
     Indication: MULTIPLE SCLEROSIS
     Dosage: MAINTENANCE DOSE
     Route: 048
     Dates: start: 20181101

REACTIONS (5)
  - Skin laceration [Recovered/Resolved]
  - Accident [Recovered/Resolved]
  - Postoperative wound infection [Not Recovered/Not Resolved]
  - Arterial injury [Recovered/Resolved]
  - Tendon injury [Recovered/Resolved]

NARRATIVE: CASE EVENT DATE: 20200327
